FAERS Safety Report 13742585 (Version 1)
Quarter: 2017Q3

REPORT INFORMATION
  Report Type: Spontaneous
  Country: FR (occurrence: FR)
  Receive Date: 20170711
  Receipt Date: 20170711
  Transmission Date: 20171127
  Serious: Yes (Other)
  Sender: FDA-Public Use
  Company Number: PHHY2011FR49103

PATIENT
  Age: 77 Year
  Sex: Male

DRUGS (3)
  1. PRAVADUAL [Concomitant]
     Active Substance: ASPIRIN\PRAVASTATIN
     Dosage: UNK UKN, UNK
  2. COVERSYL                                /FRA/ [Concomitant]
     Active Substance: PERINDOPRIL
     Dosage: UNK UKN, UNK
  3. CARTEOLOL [Suspect]
     Active Substance: CARTEOLOL
     Dosage: 1 GTT, UNK
     Route: 047
     Dates: start: 20070614

REACTIONS (6)
  - Poor peripheral circulation [Unknown]
  - Inappropriate schedule of drug administration [Unknown]
  - Loss of consciousness [Unknown]
  - Fall [Unknown]
  - Syncope [Unknown]
  - Bradycardia [Unknown]
